FAERS Safety Report 6737938-6 (Version None)
Quarter: 2010Q2

REPORT INFORMATION
  Report Type: 
  Country: None (occurrence: None)
  Receive Date: 20100524
  Receipt Date: 20100513
  Transmission Date: 20101027
  Serious: Yes (Death, Life-Threatening)
  Sender: FDA-Public Use
  Company Number: JP-ROCHE-691224

PATIENT
  Sex: Male
  Weight: 64 kg

DRUGS (3)
  1. AVASTIN [Suspect]
     Indication: LUNG ADENOCARCINOMA
     Dosage: THERAPY STATUS UNKNOWN AT THE TIME OF DEATH
     Route: 041
     Dates: start: 20100301, end: 20100301
  2. CARBOPLATIN [Suspect]
     Indication: LUNG ADENOCARCINOMA
     Dosage: THERAPY STATUS UNKNOWN AT THE TIME OF DEATH
     Route: 041
     Dates: start: 20100301, end: 20100301
  3. PACLITAXEL [Suspect]
     Indication: LUNG ADENOCARCINOMA
     Dosage: THERAPY STATUS UNKNOWN AT THE TIME OF DEATH
     Route: 041
     Dates: start: 20100301, end: 20100301

REACTIONS (3)
  - ACUTE RESPIRATORY DISTRESS SYNDROME [None]
  - FEBRILE NEUTROPENIA [None]
  - SEPSIS [None]
